FAERS Safety Report 7385015-6 (Version None)
Quarter: 2011Q1

REPORT INFORMATION
  Report Type: 
  Country: None (occurrence: None)
  Receive Date: 20110330
  Receipt Date: 20110322
  Transmission Date: 20110831
  Serious: Yes (Hospitalization)
  Sender: FDA-Public Use
  Company Number: ES-BAYER-2011-025706

PATIENT
  Age: 89 Year
  Sex: Female

DRUGS (6)
  1. OMEPRAZOLE [Concomitant]
     Indication: GASTRITIS PROPHYLAXIS
     Dosage: 20 MG, UNK
     Route: 048
  2. ASPIRIN [Suspect]
     Indication: PROPHYLAXIS
     Dosage: 100 MG, UNK
     Dates: start: 20060201, end: 20100110
  3. LORAZEPAM [Concomitant]
     Dosage: 1 MG, UNK
     Route: 048
     Dates: start: 20091201, end: 20100110
  4. ALLOPURINOL [Concomitant]
     Indication: HYPERURICAEMIA
     Dosage: 100 MG, UNK
     Route: 048
     Dates: start: 20050601, end: 20100110
  5. EMCONCOR [Concomitant]
     Indication: ISCHAEMIC CARDIOMYOPATHY
     Dosage: 2.5 MG, UNK
     Route: 048
     Dates: start: 20040101, end: 20100110
  6. ENALAPRIL [Interacting]
     Indication: HYPERTENSION
     Dosage: 20 MG, UNK
     Route: 048
     Dates: start: 20060101, end: 20100110

REACTIONS (6)
  - SOMNOLENCE [None]
  - RENAL FAILURE ACUTE [None]
  - URINARY TRACT INFECTION [None]
  - DIARRHOEA [None]
  - MALAISE [None]
  - VOMITING [None]
